FAERS Safety Report 25031521 (Version 2)
Quarter: 2025Q1

REPORT INFORMATION
  Report Type: Spontaneous
  Country: JP (occurrence: JP)
  Receive Date: 20250303
  Receipt Date: 20250314
  Transmission Date: 20250408
  Serious: Yes (Death, Hospitalization, Other)
  Sender: TEVA
  Company Number: JP-TEVA-VS-3303592

PATIENT
  Age: 53 Year
  Sex: Male

DRUGS (8)
  1. PREDNISOLONE [Suspect]
     Active Substance: PREDNISOLONE
     Indication: Pre-engraftment immune reaction
     Route: 065
  2. PREDNISOLONE [Suspect]
     Active Substance: PREDNISOLONE
     Indication: Pre-engraftment immune reaction
     Route: 065
  3. PREDNISOLONE [Suspect]
     Active Substance: PREDNISOLONE
     Indication: Pre-engraftment immune reaction
     Route: 065
  4. PREDNISOLONE [Suspect]
     Active Substance: PREDNISOLONE
     Indication: Pre-engraftment immune reaction
     Route: 065
  5. FLUDARABINE [Suspect]
     Active Substance: FLUDARABINE PHOSPHATE
     Indication: Bone marrow conditioning regimen
     Route: 065
  6. TACROLIMUS [Suspect]
     Active Substance: TACROLIMUS
     Indication: Prophylaxis against graft versus host disease
     Route: 065
  7. CYCLOSPORINE [Suspect]
     Active Substance: CYCLOSPORINE
     Indication: Prophylaxis against graft versus host disease
     Route: 065
  8. MELPHALAN [Suspect]
     Active Substance: MELPHALAN
     Indication: Bone marrow conditioning regimen
     Route: 065

REACTIONS (13)
  - Post transplant lymphoproliferative disorder [Fatal]
  - Inappropriate antidiuretic hormone secretion [Unknown]
  - Acute respiratory distress syndrome [Unknown]
  - Septic shock [Recovered/Resolved]
  - Amnesia [Unknown]
  - Haemophagocytic lymphohistiocytosis [Unknown]
  - Disseminated intravascular coagulation [Unknown]
  - Hyponatraemia [Unknown]
  - Hepatic function abnormal [Unknown]
  - Herpes zoster [Unknown]
  - Adenoviral haemorrhagic cystitis [Unknown]
  - Human herpesvirus 6 encephalitis [Unknown]
  - Drug ineffective [Unknown]
